FAERS Safety Report 10829298 (Version 1)
Quarter: 2015Q1

REPORT INFORMATION
  Report Type: Report from Study
  Country: US (occurrence: US)
  Receive Date: 20150219
  Receipt Date: 20150219
  Transmission Date: 20150721
  Serious: No
  Sender: FDA-Public Use
  Company Number: US-ABBVIE-14P-163-1188232-00

PATIENT
  Age: 52 Year
  Sex: Female

DRUGS (8)
  1. HUMIRA [Suspect]
     Active Substance: ADALIMUMAB
     Indication: CROHN^S DISEASE
     Dates: start: 20140106, end: 20140331
  2. LISINOPRIL AND HYDROCHLOROTHIAZIDE [Concomitant]
     Active Substance: HYDROCHLOROTHIAZIDE\LISINOPRIL
     Indication: PRODUCT USED FOR UNKNOWN INDICATION
     Dosage: 20/12.5 MG
  3. ZOLPIDEM [Concomitant]
     Active Substance: ZOLPIDEM\ZOLPIDEM TARTRATE
     Indication: PRODUCT USED FOR UNKNOWN INDICATION
  4. ATENOLOL. [Concomitant]
     Active Substance: ATENOLOL
     Indication: PRODUCT USED FOR UNKNOWN INDICATION
  5. VITAMIN D [Concomitant]
     Active Substance: CHOLECALCIFEROL
     Indication: VITAMIN D DECREASED
     Dates: start: 20140221
  6. ADVIL [Suspect]
     Active Substance: IBUPROFEN
     Indication: HEADACHE
     Dosage: IN PAST COUPLE OF WEEKS
  7. ASACOL [Concomitant]
     Active Substance: MESALAMINE
     Indication: PRODUCT USED FOR UNKNOWN INDICATION
     Dates: end: 20140217
  8. SULFASALAZINE. [Concomitant]
     Active Substance: SULFASALAZINE
     Indication: CROHN^S DISEASE
     Dates: start: 20140217

REACTIONS (12)
  - Sinusitis [Not Recovered/Not Resolved]
  - Nasal mucosal discolouration [Not Recovered/Not Resolved]
  - Sinus disorder [Not Recovered/Not Resolved]
  - Ear pain [Not Recovered/Not Resolved]
  - Nausea [Not Recovered/Not Resolved]
  - Vitamin D decreased [Unknown]
  - Sneezing [Not Recovered/Not Resolved]
  - Sinus headache [Not Recovered/Not Resolved]
  - Eye irritation [Not Recovered/Not Resolved]
  - Respiratory tract congestion [Not Recovered/Not Resolved]
  - Drug effect decreased [Unknown]
  - Productive cough [Unknown]

NARRATIVE: CASE EVENT DATE: 2014
